FAERS Safety Report 23101155 (Version 1)
Quarter: 2023Q4

REPORT INFORMATION
  Report Type: Spontaneous
  Country: US (occurrence: None)
  Receive Date: 20231022
  Receipt Date: 20231022
  Transmission Date: 20240110
  Serious: Yes (Hospitalization)
  Sender: FDA-Public Use
  Company Number: None

PATIENT
  Age: 79 Year
  Sex: Male
  Weight: 61.2 kg

DRUGS (1)
  1. REMDESIVIR [Suspect]
     Active Substance: REMDESIVIR
     Dates: start: 20230407, end: 20230409

REACTIONS (7)
  - Bradycardia [None]
  - Hypotension [None]
  - Hyperkalaemia [None]
  - Urinary tract infection [None]
  - SARS-CoV-2 test positive [None]
  - Urosepsis [None]
  - Acidosis [None]

NARRATIVE: CASE EVENT DATE: 20230412
